FAERS Safety Report 7412949-6 (Version None)
Quarter: 2011Q2

REPORT INFORMATION
  Report Type: 
  Country: None (occurrence: None)
  Receive Date: 20110408
  Receipt Date: 20110408
  Transmission Date: 20111010
  Serious: No
  Sender: FDA-Public Use
  Company Number: None

PATIENT
  Age: 24 Year
  Sex: Female
  Weight: 43.0917 kg

DRUGS (1)
  1. LEVAQUIN [Suspect]
     Indication: BRONCHITIS
     Dosage: 500 MG 1 DAY IV DRIP
     Route: 041
     Dates: start: 20101204, end: 20101204

REACTIONS (6)
  - NERVOUS SYSTEM DISORDER [None]
  - PAIN [None]
  - ARRHYTHMIA [None]
  - BURNING SENSATION [None]
  - TENDONITIS [None]
  - MUSCLE ATROPHY [None]
